FAERS Safety Report 17034834 (Version 4)
Quarter: 2020Q1

REPORT INFORMATION
  Report Type: Spontaneous
  Country: JP (occurrence: JP)
  Receive Date: 20191115
  Receipt Date: 20200121
  Transmission Date: 20200409
  Serious: Yes (Disabling, Other)
  Sender: FDA-Public Use
  Company Number: JP-BRISTOL-MYERS SQUIBB COMPANY-BMS-2019-100285

PATIENT
  Age: 59 Year
  Sex: Male
  Weight: 63.8 kg

DRUGS (7)
  1. NOVAMIN [AMIKACIN SULFATE] [Concomitant]
     Indication: METASTATIC RENAL CELL CARCINOMA
     Dosage: 5 MILLIGRAM, TID
     Route: 048
     Dates: start: 20191015
  2. XARELTO [Concomitant]
     Active Substance: RIVAROXABAN
     Indication: METASTATIC RENAL CELL CARCINOMA
     Dosage: 15 MILLIGRAM, QD
     Route: 048
     Dates: start: 20191004
  3. YERVOY [Suspect]
     Active Substance: IPILIMUMAB
     Indication: METASTATIC RENAL CELL CARCINOMA
     Dosage: 1 MILLIGRAM/KILOGRAM
     Route: 041
     Dates: start: 20191015
  4. OPDIVO [Suspect]
     Active Substance: NIVOLUMAB
     Indication: METASTATIC RENAL CELL CARCINOMA
     Dosage: 240 MILLIGRAM
     Route: 041
     Dates: start: 20191015
  5. TOARASET [Concomitant]
     Active Substance: ACETAMINOPHEN\TRAMADOL HYDROCHLORIDE
     Indication: METASTATIC RENAL CELL CARCINOMA
     Dosage: UNK UNK, TID
     Route: 048
     Dates: start: 20191004, end: 20191014
  6. MAGMITT [Concomitant]
     Active Substance: MAGNESIUM OXIDE
     Indication: METASTATIC RENAL CELL CARCINOMA
     Dosage: 330 MILLIGRAM, TID
     Route: 048
     Dates: start: 20191014
  7. OXYCODONE [OXYCODONE HYDROCHLORIDE] [Concomitant]
     Active Substance: OXYCODONE HYDROCHLORIDE
     Indication: METASTATIC RENAL CELL CARCINOMA
     Dosage: 5 MILLIGRAM, BID
     Route: 048
     Dates: start: 20191015

REACTIONS (3)
  - Interstitial lung disease [Unknown]
  - Lung disorder [Recovered/Resolved]
  - Lymphangiosis carcinomatosa [Unknown]

NARRATIVE: CASE EVENT DATE: 20191016
